FAERS Safety Report 19231565 (Version 1)
Quarter: 2021Q2

REPORT INFORMATION
  Report Type: Spontaneous
  Country: FR (occurrence: FR)
  Receive Date: 20210507
  Receipt Date: 20210507
  Transmission Date: 20210717
  Serious: Yes (Death)
  Sender: FDA-Public Use
  Company Number: FR-009507513-2105FRA000830

PATIENT
  Age: 79 Year
  Sex: Male
  Weight: 90 kg

DRUGS (14)
  1. NORMACOL [Concomitant]
     Active Substance: HERBALS\KARAYA GUM
  2. ATENOLOL. [Concomitant]
     Active Substance: ATENOLOL
  3. FOLIC ACID. [Concomitant]
     Active Substance: FOLIC ACID
  4. MOVICOL [Concomitant]
     Active Substance: POLYETHYLENE GLYCOL 3350\POTASSIUM CHLORIDE\SODIUM BICARBONATE\SODIUM CHLORIDE
  5. KARDEGIC [Concomitant]
     Active Substance: ASPIRIN DL-LYSINE
  6. DIFFU?K [Concomitant]
     Active Substance: POTASSIUM CHLORIDE
  7. ALLOPURINOL. [Concomitant]
     Active Substance: ALLOPURINOL
  8. LASILIX [Concomitant]
     Active Substance: FUROSEMIDE
  9. INVANZ [Suspect]
     Active Substance: ERTAPENEM SODIUM
     Indication: URINARY TRACT INFECTION
     Dosage: 1 GRAM, QD
     Route: 041
     Dates: start: 20210416, end: 20210416
  10. ZOPICLONE [Concomitant]
     Active Substance: ZOPICLONE
  11. BAMLANIVIMAB. [Suspect]
     Active Substance: BAMLANIVIMAB
     Indication: COVID-19
     Dosage: 4/5 OF AN INFUSION OF 700/1400 MG
     Route: 041
     Dates: start: 20210409, end: 20210409
  12. LOVENOX [Concomitant]
     Active Substance: ENOXAPARIN SODIUM
  13. BACLOFEN. [Concomitant]
     Active Substance: BACLOFEN
  14. DOLIPRANE [Concomitant]
     Active Substance: ACETAMINOPHEN

REACTIONS (1)
  - Cerebrovascular accident [Fatal]

NARRATIVE: CASE EVENT DATE: 20210417
